FAERS Safety Report 4757323-6 (Version None)
Quarter: 2005Q3

REPORT INFORMATION
  Report Type: 
  Country: None (occurrence: None)
  Receive Date: 20050831
  Receipt Date: 20050819
  Transmission Date: 20060218
  Serious: Yes (Hospitalization)
  Sender: FDA-Public Use
  Company Number: PHEH2005US09301

PATIENT
  Sex: Female

DRUGS (3)
  1. LOTREL [Suspect]
     Indication: HYPERTENSION
     Dosage: 5/20MG, BID
     Route: 048
     Dates: start: 20050201
  2. LOTREL [Suspect]
     Dosage: 10/20MG, QD
     Route: 048
  3. LOTREL [Suspect]
     Dosage: 5/20MG, BID
     Route: 048

REACTIONS (1)
  - MEDICATION ERROR [None]
